FAERS Safety Report 18246457 (Version 1)
Quarter: 2020Q3

REPORT INFORMATION
  Report Type: Spontaneous
  Country: US (occurrence: US)
  Receive Date: 20200909
  Receipt Date: 20200909
  Transmission Date: 20201103
  Serious: No
  Sender: FDA-Public Use
  Company Number: US-JNJFOC-20200909781

PATIENT
  Age: 35 Year
  Sex: Male

DRUGS (1)
  1. SPRAVATO [Suspect]
     Active Substance: ESKETAMINE
     Indication: PRODUCT USED FOR UNKNOWN INDICATION

REACTIONS (4)
  - Blood pressure decreased [Unknown]
  - Blood glucose decreased [Unknown]
  - Pain in jaw [Unknown]
  - Dehydration [Unknown]

NARRATIVE: CASE EVENT DATE: 20200903
